FAERS Safety Report 5704421-6 (Version None)
Quarter: 2008Q2

REPORT INFORMATION
  Report Type: 
  Country: None (occurrence: None)
  Receive Date: 20080414
  Receipt Date: 20080402
  Transmission Date: 20081010
  Serious: Yes (Life-Threatening)
  Sender: FDA-Public Use
  Company Number: B0515492A

PATIENT
  Age: 69 Year
  Sex: Male

DRUGS (4)
  1. AUGMENTIN '125' [Suspect]
     Dosage: 2G SINGLE DOSE
     Route: 042
     Dates: start: 20061107
  2. SUFENTANIL CITRATE [Concomitant]
     Dates: start: 20061107, end: 20061107
  3. NIMBEX [Concomitant]
     Dates: start: 20071107, end: 20071107
  4. DIPRIVAN [Concomitant]
     Dosage: 160MG PER DAY
     Route: 042
     Dates: start: 20061107, end: 20061107

REACTIONS (2)
  - HYPOTENSION [None]
  - RASH ERYTHEMATOUS [None]
